FAERS Safety Report 5387431-0 (Version None)
Quarter: 2007Q3

REPORT INFORMATION
  Report Type: 
  Country: None (occurrence: None)
  Receive Date: 20070711
  Receipt Date: 20070711
  Transmission Date: 20080115
  Serious: No
  Sender: FDA-Public Use
  Company Number: None

PATIENT
  Sex: Female

DRUGS (1)
  1. LUNESTA [Suspect]
     Dosage: 3 MG
     Dates: start: 20070609, end: 20070609

REACTIONS (5)
  - CHILLS [None]
  - DYSGEUSIA [None]
  - MIDDLE INSOMNIA [None]
  - PHARYNGOLARYNGEAL PAIN [None]
  - PYREXIA [None]
